FAERS Safety Report 20944990 (Version 1)
Quarter: 2022Q2

REPORT INFORMATION
  Report Type: Spontaneous
  Country: US (occurrence: US)
  Receive Date: 20220610
  Receipt Date: 20220610
  Transmission Date: 20220720
  Serious: No
  Sender: FDA-Public Use
  Company Number: US-PFIZER INC-202200810143

PATIENT
  Age: 37 Year
  Sex: Female

DRUGS (13)
  1. PAXLOVID [Suspect]
     Active Substance: NIRMATRELVIR\RITONAVIR
     Indication: COVID-19 treatment
     Dosage: UNK
     Dates: start: 20220521, end: 20220526
  2. BUPRENORPHINE [Concomitant]
     Active Substance: BUPRENORPHINE
     Dates: start: 20191101
  3. BUPRENORPHINE [Concomitant]
     Active Substance: BUPRENORPHINE
     Dates: start: 20201201
  4. BUPRENORPHINE [Concomitant]
     Active Substance: BUPRENORPHINE
     Dates: start: 20201201
  5. BUPRENORPHINE [Concomitant]
     Active Substance: BUPRENORPHINE
     Dates: start: 20190501
  6. BUPRENORPHINE [Concomitant]
     Active Substance: BUPRENORPHINE
     Dates: start: 20190501
  7. BUPRENORPHINE [Concomitant]
     Active Substance: BUPRENORPHINE
     Dates: start: 20180901
  8. NALOXONE [Concomitant]
     Active Substance: NALOXONE
     Dosage: UNK
     Dates: start: 20191101
  9. GABAPENTIN [Concomitant]
     Active Substance: GABAPENTIN
     Dosage: UNK
     Dates: start: 20201201
  10. CLONIDINE [Concomitant]
     Active Substance: CLONIDINE
     Dosage: UNK
     Dates: start: 20201201
  11. CANNABIDIOL\HERBALS [Concomitant]
     Active Substance: CANNABIDIOL\HERBALS
     Dosage: UNK
     Dates: start: 20190501
  12. CURCUMIN [Concomitant]
     Active Substance: CURCUMIN
     Dosage: UNK
     Dates: start: 20190501
  13. DIPHENHYDRAMINE [Concomitant]
     Active Substance: DIPHENHYDRAMINE
     Dosage: UNK
     Dates: start: 20180901

REACTIONS (2)
  - COVID-19 [Recovering/Resolving]
  - Disease recurrence [Recovering/Resolving]

NARRATIVE: CASE EVENT DATE: 20220601
